FAERS Safety Report 18497890 (Version 1)
Quarter: 2020Q4

REPORT INFORMATION
  Report Type: Spontaneous
  Country: US (occurrence: US)
  Receive Date: 20201112
  Receipt Date: 20201112
  Transmission Date: 20210114
  Serious: Yes (Other)
  Sender: FDA-Public Use
  Company Number: US-BAUSCH-BL-2020-032148

PATIENT
  Sex: Female

DRUGS (2)
  1. LACRISERT [Suspect]
     Active Substance: HYDROXYPROPYL CELLULOSE
     Indication: DRY EYE
     Route: 047
  2. LACRISERT [Suspect]
     Active Substance: HYDROXYPROPYL CELLULOSE
     Dosage: RESTARTED WITH CANADA PRODUCT
     Route: 047

REACTIONS (4)
  - Eye pain [Not Recovered/Not Resolved]
  - Suicidal ideation [Unknown]
  - Product availability issue [Unknown]
  - Therapy interrupted [Unknown]
